FAERS Safety Report 5385217-4 (Version None)
Quarter: 2007Q3

REPORT INFORMATION
  Report Type: 
  Country: None (occurrence: None)
  Receive Date: 20070709
  Receipt Date: 20070627
  Transmission Date: 20080115
  Serious: Yes (Hospitalization)
  Sender: FDA-Public Use
  Company Number: 2007SP012995

PATIENT
  Age: 44 Year
  Sex: Female

DRUGS (2)
  1. TEMODAL [Suspect]
     Indication: GLIOBLASTOMA MULTIFORME
     Dosage: 100 MG;QD;PO
     Route: 048
     Dates: start: 20061206, end: 20070117
  2. DECADRON [Concomitant]

REACTIONS (2)
  - HYPERCHOLESTEROLAEMIA [None]
  - JAUNDICE [None]
